FAERS Safety Report 15584105 (Version 2)
Quarter: 2018Q4

REPORT INFORMATION
  Report Type: Spontaneous
  Country: FR (occurrence: FR)
  Receive Date: 20181104
  Receipt Date: 20181116
  Transmission Date: 20190205
  Serious: Yes (Hospitalization, Other)
  Sender: FDA-Public Use
  Company Number: FR-009507513-1810FRA013000

PATIENT
  Age: 71 Year
  Sex: Male

DRUGS (19)
  1. OENOBIOL SOLAIRE INTENSIF [Concomitant]
     Indication: PANCREATITIS CHRONIC
     Dosage: 25000U, 6 DOSAGE FORM, QD
  2. ALDACTONE [Concomitant]
     Active Substance: SPIRONOLACTONE
     Indication: PROPHYLAXIS
     Dosage: 75 MILLIGRAM, QD
     Dates: end: 2017
  3. PROPRANOLOL HYDROCHLORIDE. [Concomitant]
     Active Substance: PROPRANOLOL HYDROCHLORIDE
     Indication: PROPHYLAXIS
     Dosage: 40 MILLIGRAM, BID
     Dates: end: 2017
  4. OFLOCET (OFLOXACIN) [Concomitant]
     Active Substance: OFLOXACIN
     Indication: ANALGESIC THERAPY
     Dosage: 200 MILLIGRAM, QD
     Dates: start: 20160128, end: 2017
  5. REBETOL [Suspect]
     Active Substance: RIBAVIRIN
     Indication: HEPATITIS C
     Dosage: 400 MILLIGRAM, BID
     Dates: start: 20080214, end: 20090723
  6. VIRAFERONPEG [Suspect]
     Active Substance: PEGINTERFERON ALFA-2B
     Indication: HEPATITIS C
     Dosage: 80 MICROGRAM, QW
     Dates: start: 20080214, end: 20090723
  7. TAREG [Concomitant]
     Active Substance: VALSARTAN
     Indication: HYPERTENSION
     Dosage: 80 MILLIGRAM, QD
     Dates: start: 2016
  8. AVLOCARDYL [Concomitant]
     Active Substance: PROPRANOLOL HYDROCHLORIDE
     Indication: VARICES OESOPHAGEAL
     Dosage: 40 MILLIGRAM, QD
  9. NICOBION [Concomitant]
     Active Substance: NIACINAMIDE
     Indication: VITAMIN SUPPLEMENTATION
     Dosage: 500 MILLIGRAM, QD
     Dates: start: 2012
  10. DUPHALAC [Concomitant]
     Active Substance: LACTULOSE
     Indication: HEPATIC ENCEPHALOPATHY
     Dosage: 10G/15ML, 4 DOSAGE FORM, QD
  11. CREON [Concomitant]
     Active Substance: PANCRELIPASE AMYLASE\PANCRELIPASE LIPASE\PANCRELIPASE PROTEASE
     Indication: PANCREATITIS CHRONIC
     Dosage: 6 DOSAGE FORM, QD
     Dates: start: 2016, end: 2017
  12. LANTUS [Concomitant]
     Active Substance: INSULIN GLARGINE
     Indication: DIABETES MELLITUS
     Dosage: 300 IU/3ML, 24 INTERNATIONAL UNIT, QD
  13. INNOHEP [Concomitant]
     Active Substance: TINZAPARIN SODIUM
     Indication: PORTAL VEIN THROMBOSIS
     Dosage: 1000 IU/0.5 MI, QD
     Dates: start: 20151222
  14. INEXIUM (ESOMEPRAZOLE MAGNESIUM) [Concomitant]
     Active Substance: ESOMEPRAZOLE MAGNESIUM
     Indication: PORTAL HYPERTENSIVE GASTROPATHY
     Dosage: 10 MILLIGRAM, BID
  15. ALPHAGAN P [Concomitant]
     Active Substance: BRIMONIDINE TARTRATE
     Indication: OCULAR HYPERTENSION
     Dosage: 2 MILLIGRAM PER MILLILITRE, BID
  16. COSOPT [Concomitant]
     Active Substance: DORZOLAMIDE HYDROCHLORIDE\TIMOLOL MALEATE
     Indication: OCULAR HYPERTENSION
     Dosage: 20MG/5ML, BID
  17. NIACINAMIDE (+) PYRIDOXINE (+) THIAMINE [Concomitant]
     Indication: HYPOVITAMINOSIS
     Dosage: UNK
     Dates: start: 2016, end: 2017
  18. PREVISCAN (FLUINDIONE) [Suspect]
     Active Substance: FLUINDIONE
     Indication: PORTAL VEIN THROMBOSIS
     Dosage: 20 MG, 1/2 PER DAY
     Dates: start: 20170721
  19. CONTRAMAL [Concomitant]
     Active Substance: TRAMADOL HYDROCHLORIDE
     Indication: ANALGESIC THERAPY
     Dosage: 50 MG, 4 PER DAY
     Dates: start: 20160128, end: 2017

REACTIONS (3)
  - Portal hypertension [Recovering/Resolving]
  - Overdose [Unknown]
  - Thrombocytopenia [Recovering/Resolving]

NARRATIVE: CASE EVENT DATE: 201706
